FAERS Safety Report 24338656 (Version 1)
Quarter: 2024Q3

REPORT INFORMATION
  Report Type: Spontaneous
  Country: US (occurrence: US)
  Receive Date: 20240919
  Receipt Date: 20240919
  Transmission Date: 20241016
  Serious: No
  Sender: SANOFI AVENTIS
  Company Number: US-SANOFI-02212885

PATIENT
  Age: 86 Year
  Sex: Female

DRUGS (2)
  1. TOUJEO [Suspect]
     Active Substance: INSULIN GLARGINE
     Indication: Type 2 diabetes mellitus
     Dosage: 10 U, QD
  2. TOUJEO [Suspect]
     Active Substance: INSULIN GLARGINE
     Dosage: 2 TO 6 UNITS DEPENDING ON HER LEVEL AND TAKES IT EVERY MORNING, AT DINNER, AND AT BED TIME, TID

REACTIONS (2)
  - Product dispensing error [Unknown]
  - Intentional product misuse [Unknown]
